FAERS Safety Report 23682136 (Version 1)
Quarter: 2024Q1

REPORT INFORMATION
  Report Type: Spontaneous
  Country: US (occurrence: None)
  Receive Date: 20240327
  Receipt Date: 20240327
  Transmission Date: 20240410
  Serious: Yes (Hospitalization)
  Sender: FDA-Public Use
  Company Number: None

PATIENT
  Age: 37 Year
  Sex: Female

DRUGS (1)
  1. ENTYVIO [Suspect]
     Active Substance: VEDOLIZUMAB
     Indication: Colitis ulcerative
     Dosage: FREQUENCY : AS DIRECTED;?

REACTIONS (10)
  - Flushing [None]
  - Arthralgia [None]
  - Pain in extremity [None]
  - Asthenia [None]
  - Memory impairment [None]
  - Product dose omission issue [None]
  - Pneumonia [None]
  - Sepsis [None]
  - Blood potassium decreased [None]
  - Arthralgia [None]
